FAERS Safety Report 20410708 (Version 1)
Quarter: 2022Q1

REPORT INFORMATION
  Report Type: Spontaneous
  Country: AE (occurrence: AE)
  Receive Date: 20220201
  Receipt Date: 20220201
  Transmission Date: 20220424
  Serious: Yes (Disabling, Other)
  Sender: FDA-Public Use
  Company Number: AE-009507513-2201ARE007717

PATIENT
  Age: 45 Year
  Sex: Female

DRUGS (1)
  1. PEMBROLIZUMAB [Suspect]
     Active Substance: PEMBROLIZUMAB
     Indication: Squamous cell carcinoma of the vagina
     Dosage: 200 MILLIGRAM, Q3W
     Route: 042

REACTIONS (3)
  - Ophthalmoplegia [Recovering/Resolving]
  - Immune-mediated hypothyroidism [Unknown]
  - Off label use [Unknown]
